FAERS Safety Report 8220663-2 (Version None)
Quarter: 2012Q1

REPORT INFORMATION
  Report Type: 
  Country: None (occurrence: None)
  Receive Date: 20120320
  Receipt Date: 20120308
  Transmission Date: 20120608
  Serious: Yes (Death)
  Sender: FDA-Public Use
  Company Number: JP-ELI_LILLY_AND_COMPANY-JP201202003123

PATIENT
  Age: 55 Year
  Sex: Female

DRUGS (5)
  1. MAGMITT [Concomitant]
     Dosage: UNK
     Route: 048
  2. ZYPREXA [Suspect]
     Indication: SCHIZOPHRENIA
     Dosage: 12.5 MG, QD
     Route: 048
     Dates: start: 20111027, end: 20120209
  3. HIRNAMIN [Concomitant]
     Dosage: UNK
     Route: 048
  4. ARIPIPRAZOLE [Concomitant]
     Dosage: UNK
     Dates: start: 20120209
  5. SILECE [Concomitant]
     Dosage: UNK
     Route: 048

REACTIONS (2)
  - DIABETES MELLITUS [None]
  - PNEUMONIA [None]
